FAERS Safety Report 8373335-8 (Version None)
Quarter: 2012Q2

REPORT INFORMATION
  Report Type: 
  Country: None (occurrence: None)
  Receive Date: 20120521
  Receipt Date: 20120515
  Transmission Date: 20120825
  Serious: Yes (Hospitalization, Other)
  Sender: FDA-Public Use
  Company Number: FR-PFIZER INC-FR-WYE-G03826109

PATIENT
  Age: 39 Year
  Sex: Female

DRUGS (7)
  1. EFFEXOR XR [Suspect]
     Dosage: 37.5 MG, 1X/DAY
     Route: 048
     Dates: start: 20090114, end: 20090120
  2. TARGOCID [Suspect]
     Dosage: 600 MG, 2X/DAY
     Route: 042
     Dates: start: 20081231, end: 20090119
  3. POLARAMINE [Suspect]
     Dosage: 2 MG, 2X/DAY
     Route: 048
     Dates: start: 20090114, end: 20090119
  4. ROCEPHIN [Concomitant]
     Dosage: UNK
  5. CIPROFLOXACIN HYDROCHLORIDE [Concomitant]
     Dosage: UNK
  6. NEURONTIN [Suspect]
     Dosage: 300 MG, 1X/DAY
     Route: 048
     Dates: start: 20081230, end: 20090119
  7. GENTAMICIN [Concomitant]
     Dosage: UNK

REACTIONS (1)
  - AGRANULOCYTOSIS [None]
